FAERS Safety Report 11514806 (Version 10)
Quarter: 2016Q1

REPORT INFORMATION
  Report Type: Spontaneous
  Country: FR (occurrence: FR)
  Receive Date: 20150916
  Receipt Date: 20160321
  Transmission Date: 20160525
  Serious: Yes (Hospitalization, Other)
  Sender: FDA-Public Use
  Company Number: FR-DSJP-DSE-2015-128080

PATIENT

DRUGS (2)
  1. LEVOTHYROX [Concomitant]
     Active Substance: LEVOTHYROXINE
     Indication: AUTOIMMUNE THYROIDITIS
     Dosage: UNK
     Dates: start: 2000
  2. OLMETEC [Suspect]
     Active Substance: OLMESARTAN MEDOXOMIL
     Indication: HYPERTENSION
     Dosage: UNK
     Route: 048
     Dates: start: 2013, end: 2015

REACTIONS (2)
  - Photosensitivity reaction [Unknown]
  - Dermatomyositis [Recovered/Resolved]

NARRATIVE: CASE EVENT DATE: 2015
